FAERS Safety Report 25793157 (Version 1)
Quarter: 2025Q3

REPORT INFORMATION
  Report Type: Spontaneous
  Country: US (occurrence: None)
  Receive Date: 20250911
  Receipt Date: 20250911
  Transmission Date: 20251020
  Serious: Yes (Disabling)
  Sender: FDA-CTU
  Company Number: None

PATIENT
  Sex: Female

DRUGS (1)
  1. QULIPTA [Suspect]
     Active Substance: ATOGEPANT
     Dates: start: 20250909, end: 20250911

REACTIONS (2)
  - Palpitations [None]
  - Anxiety [None]

NARRATIVE: CASE EVENT DATE: 20250910
